FAERS Safety Report 9031712 (Version 1)
Quarter: 2013Q1

REPORT INFORMATION
  Report Type: Spontaneous
  Country: US (occurrence: US)
  Receive Date: 20130124
  Receipt Date: 20130124
  Transmission Date: 20140127
  Serious: Yes (Hospitalization, Other)
  Sender: FDA-Public Use
  Company Number: US-TEVA-382190USA

PATIENT
  Age: 66 Year
  Sex: Female

DRUGS (8)
  1. IFOSFAMIDE [Suspect]
     Indication: NON-HODGKIN^S LYMPHOMA RECURRENT
     Route: 065
  2. PAROXETINE [Suspect]
     Route: 065
  3. METHYLTHIONINIUM CHLORIDE [Suspect]
     Indication: ENCEPHALOPATHY
     Dosage: 50MG (0.7MG/KG) EVERY 4H
     Route: 042
  4. CARBOPLATIN [Concomitant]
     Indication: NON-HODGKIN^S LYMPHOMA RECURRENT
     Route: 065
  5. ETOPOSIDE [Concomitant]
     Indication: NON-HODGKIN^S LYMPHOMA RECURRENT
     Route: 065
  6. BUPROPION [Concomitant]
     Route: 065
  7. DEXAMETHASONE [Concomitant]
     Route: 065
  8. APREPITANT [Concomitant]
     Route: 065

REACTIONS (9)
  - Encephalopathy [Recovered/Resolved]
  - Serotonin syndrome [Recovered/Resolved]
  - Delirium [Unknown]
  - Deep vein thrombosis [Unknown]
  - Aspiration [Unknown]
  - Tachypnoea [Unknown]
  - Pleural effusion [Unknown]
  - Pulmonary oedema [Unknown]
  - Infection [Unknown]
